FAERS Safety Report 17606960 (Version 1)
Quarter: 2020Q1

REPORT INFORMATION
  Report Type: Spontaneous
  Country: US (occurrence: US)
  Receive Date: 20200331
  Receipt Date: 20200331
  Transmission Date: 20200409
  Serious: Yes (Other)
  Sender: FDA-Public Use
  Company Number: US-UCBSA-2020013425

PATIENT
  Age: 31 Year
  Sex: Female
  Weight: 180 kg

DRUGS (4)
  1. VIMPAT [Suspect]
     Active Substance: LACOSAMIDE
     Indication: PRODUCT USED FOR UNKNOWN INDICATION
     Dosage: 200 MILLIGRAM, 2X/DAY (BID)
  2. KEPPRA [Suspect]
     Active Substance: LEVETIRACETAM
     Indication: PRODUCT USED FOR UNKNOWN INDICATION
     Dosage: 3000 MILLIGRAM, ONCE DAILY (QD)
  3. INSULIN NPH [INSULIN ISOPHANE BOVINE] [Concomitant]
     Indication: GESTATIONAL DIABETES
     Dosage: 300 MILLIGRAM, ONCE DAILY (QD)
  4. AMOXICILLIN. [Concomitant]
     Active Substance: AMOXICILLIN
     Indication: EAR INFECTION
     Dosage: 250 MILLIGRAM, 2X/DAY (BID)

REACTIONS (4)
  - Maternal exposure during breast feeding [Unknown]
  - Intentional product misuse [Unknown]
  - Paternal exposure during pregnancy [Unknown]
  - Gestational diabetes [Unknown]

NARRATIVE: CASE EVENT DATE: 20190309
